FAERS Safety Report 17610348 (Version 1)
Quarter: 2020Q2

REPORT INFORMATION
  Report Type: Spontaneous
  Country: US (occurrence: US)
  Receive Date: 20200401
  Receipt Date: 20200401
  Transmission Date: 20200713
  Serious: No
  Sender: FDA-Public Use
  Company Number: US-AMGEN-USASP2020051111

PATIENT
  Sex: Female

DRUGS (1)
  1. MVASI [Suspect]
     Active Substance: BEVACIZUMAB-AWWB
     Indication: BREAST CANCER
     Dosage: 375 MILLIGRAM, Q2WK
     Route: 065
     Dates: start: 20191224

REACTIONS (2)
  - Off label use [Unknown]
  - Haematuria [Unknown]
